FAERS Safety Report 12598244 (Version 1)
Quarter: 2016Q3

REPORT INFORMATION
  Report Type: Report from Study
  Country: DE (occurrence: DE)
  Receive Date: 20160726
  Receipt Date: 20160726
  Transmission Date: 20161109
  Serious: Yes (Hospitalization, Other)
  Sender: FDA-Public Use
  Company Number: PHHO2009DE017660

PATIENT
  Age: 45 Year
  Sex: Female
  Weight: 68.5 kg

DRUGS (8)
  1. PAZOPANIB [Suspect]
     Active Substance: PAZOPANIB
     Indication: OVARIAN CANCER
     Dosage: 800 MG, QD
     Route: 048
     Dates: start: 20091027, end: 20091110
  2. PAZOPANIB [Suspect]
     Active Substance: PAZOPANIB
     Indication: MALIGNANT PERITONEAL NEOPLASM
  3. PAZOPANIB [Suspect]
     Active Substance: PAZOPANIB
     Indication: FALLOPIAN TUBE CANCER
  4. LEVOTHYROXINE. [Concomitant]
     Active Substance: LEVOTHYROXINE
     Indication: HYPOTHYROIDISM
     Dosage: 25 UG, QD
     Route: 048
     Dates: end: 20091219
  5. FEMOSTON [Concomitant]
     Active Substance: DYDROGESTERONE\ESTRADIOL
     Indication: PRODUCT USED FOR UNKNOWN INDICATION
     Dosage: 1 MG, QW
     Route: 048
     Dates: end: 20091024
  6. PHOSPHORUS [Concomitant]
     Active Substance: PHOSPHORUS
     Indication: PRODUCT USED FOR UNKNOWN INDICATION
     Dosage: 1 DF, OT
     Route: 048
     Dates: start: 20090924, end: 20091107
  7. FRAXIPARIN [Concomitant]
     Active Substance: NADROPARIN CALCIUM
     Indication: THROMBOSIS
     Dosage: 1 ML, QD
     Route: 058
     Dates: start: 20090902, end: 20091111
  8. FRAXIPARIN [Concomitant]
     Active Substance: NADROPARIN CALCIUM
     Dosage: 1 ML, QD
     Route: 058
     Dates: start: 20091116, end: 20091230

REACTIONS (6)
  - Alanine aminotransferase increased [Recovered/Resolved]
  - Aspartate aminotransferase increased [Recovered/Resolved]
  - Vomiting [Recovered/Resolved]
  - Pyrexia [Recovered/Resolved]
  - Fatigue [Recovered/Resolved]
  - Blood lactate dehydrogenase increased [Recovered/Resolved]

NARRATIVE: CASE EVENT DATE: 20091109
